FAERS Safety Report 11230409 (Version 1)
Quarter: 2015Q2

REPORT INFORMATION
  Report Type: Report from Study
  Country: US (occurrence: None)
  Receive Date: 20150629
  Receipt Date: 20150629
  Transmission Date: 20150821
  Serious: Yes (Other)
  Sender: FDA-Public Use
  Company Number: ADR-2015-00844

PATIENT
  Age: 61 Year
  Sex: Male

DRUGS (4)
  1. CLONIDINE. [Suspect]
     Active Substance: CLONIDINE
  2. COMPOUNDED BACLOFEN INTRATHECAL [Suspect]
     Active Substance: BACLOFEN
  3. DILAUDID [Suspect]
     Active Substance: HYDROMORPHONE HYDROCHLORIDE
  4. BUPIVACAINE INTRATHECAL [Suspect]
     Active Substance: BUPIVACAINE

REACTIONS (7)
  - Neck pain [None]
  - Implant site extravasation [None]
  - Device kink [None]
  - Condition aggravated [None]
  - Device dislocation [None]
  - Medical device site hypoaesthesia [None]
  - Pain [None]

NARRATIVE: CASE EVENT DATE: 20150126
